FAERS Safety Report 15799088 (Version 3)
Quarter: 2019Q1

REPORT INFORMATION
  Report Type: Other
  Country: IT (occurrence: IT)
  Receive Date: 20190108
  Receipt Date: 20190205
  Transmission Date: 20190417
  Serious: Yes (Death, Hospitalization, Other)
  Sender: FDA-Public Use
  Company Number: IT-ASPEN-GLO2018IT013119

PATIENT
  Age: 82 Year
  Sex: Male

DRUGS (5)
  1. OBINUTUZUMAB. [Suspect]
     Active Substance: OBINUTUZUMAB
     Dosage: 1000 MG CYCLICALLY ON DAYS 8 AND 15 OF CYCLE 1 AND DAY 1 OF CYCLES 2-6
     Route: 042
  2. OBINUTUZUMAB. [Suspect]
     Active Substance: OBINUTUZUMAB
     Indication: CHRONIC LYMPHOCYTIC LEUKAEMIA
     Dosage: 100 MG CYCLICALLY ON DAY +1
     Route: 042
  3. OBINUTUZUMAB. [Suspect]
     Active Substance: OBINUTUZUMAB
     Indication: NEUROPATHY PERIPHERAL
     Dosage: 900 MG CYCLICALLY. ON DAY +2
     Route: 042
  4. CHLORAMBUCIL [Suspect]
     Active Substance: CHLORAMBUCIL
     Indication: NEUROPATHY PERIPHERAL
  5. CHLORAMBUCIL [Suspect]
     Active Substance: CHLORAMBUCIL
     Indication: CHRONIC LYMPHOCYTIC LEUKAEMIA
     Dosage: 0.5 MG/KG CYCLICALLY. ON DAYS 1 AND 15 OF CYCLES 1-6
     Route: 048

REACTIONS (2)
  - Pneumonia [Fatal]
  - Neutropenia [Unknown]
